FAERS Safety Report 7376402-0 (Version None)
Quarter: 2011Q1

REPORT INFORMATION
  Report Type: 
  Country: None (occurrence: None)
  Receive Date: 20110325
  Receipt Date: 20110321
  Transmission Date: 20110831
  Serious: No
  Sender: FDA-Public Use
  Company Number: US-BAYER-2011-025038

PATIENT
  Sex: Female

DRUGS (3)
  1. BEYAZ [Suspect]
     Indication: CONTRACEPTION
     Dosage: UNK
     Route: 048
     Dates: start: 20110314
  2. BEYAZ [Suspect]
     Indication: HYPOMENORRHOEA
  3. BEYAZ [Suspect]
     Indication: MOOD ALTERED

REACTIONS (1)
  - MENSTRUATION DELAYED [None]
